FAERS Safety Report 5019803-8 (Version None)
Quarter: 2006Q2

REPORT INFORMATION
  Report Type: 
  Country: None (occurrence: None)
  Receive Date: 20060607
  Receipt Date: 20060530
  Transmission Date: 20061013
  Serious: Yes (Hospitalization)
  Sender: FDA-Public Use
  Company Number: US-JNJFOC-20060503164

PATIENT
  Age: 18 Year
  Sex: Female
  Weight: 61.24 kg

DRUGS (5)
  1. MONISTAT 3 COMBINATION PACK [Suspect]
     Indication: FUNGAL INFECTION
     Route: 067
  2. MONISTAT 3 COMBINATION PACK [Suspect]
     Route: 061
  3. AUGMENTIN '125' [Suspect]
     Route: 048
  4. AUGMENTIN '125' [Suspect]
     Indication: ANTIBIOTIC PROPHYLAXIS
     Route: 048
  5. ALBUTEROL SULFATE AUTOHALER [Concomitant]
     Route: 055

REACTIONS (5)
  - DEHYDRATION [None]
  - HAEMATEMESIS [None]
  - HYPOTENSION [None]
  - NAUSEA [None]
  - VOMITING [None]
